FAERS Safety Report 6051930-9 (Version None)
Quarter: 2009Q1

REPORT INFORMATION
  Report Type: 
  Country: None (occurrence: None)
  Receive Date: 20090126
  Receipt Date: 20090116
  Transmission Date: 20090719
  Serious: Yes (Other)
  Sender: FDA-Public Use
  Company Number: US-PFIZER INC-2009158267

PATIENT
  Sex: Male

DRUGS (6)
  1. LIPITOR [Suspect]
     Dosage: UNK
     Route: 048
     Dates: start: 20080601, end: 20081001
  2. PLAVIX [Suspect]
     Indication: STENT PLACEMENT
     Dosage: 75 MG, 1X/DAY
     Route: 048
     Dates: start: 20080601
  3. PRILOSEC [Suspect]
     Dosage: UNK
     Route: 048
     Dates: start: 20081001, end: 20080101
  4. ACETYLSALICYLIC ACID [Concomitant]
     Dosage: UNK
     Route: 048
     Dates: start: 20080601
  5. MULTI-VITAMINS [Concomitant]
  6. CRANBERRY [Concomitant]
     Indication: URINARY TRACT DISORDER
     Dosage: UNK

REACTIONS (4)
  - LIVER FUNCTION TEST ABNORMAL [None]
  - MALAISE [None]
  - PANCREATITIS [None]
  - WEIGHT DECREASED [None]
